FAERS Safety Report 21213704 (Version 1)
Quarter: 2022Q3

REPORT INFORMATION
  Report Type: Spontaneous
  Country: JP (occurrence: JP)
  Receive Date: 20220816
  Receipt Date: 20220816
  Transmission Date: 20221027
  Serious: Yes (Other)
  Sender: FDA-Public Use
  Company Number: JP-SUN PHARMACEUTICAL INDUSTRIES LTD-2022RR-348184

PATIENT
  Age: 8 Decade
  Sex: Male

DRUGS (6)
  1. CEFTRIAXONE [Suspect]
     Active Substance: CEFTRIAXONE
     Indication: Hyperammonaemic encephalopathy
     Dosage: UNK
     Route: 065
  2. BORTEZOMIB [Suspect]
     Active Substance: BORTEZOMIB
     Indication: Hyperammonaemic encephalopathy
     Dosage: UNK, WEEKLY
     Route: 065
  3. DEXAMETHASONE [Suspect]
     Active Substance: DEXAMETHASONE
     Indication: Hyperammonaemic encephalopathy
     Dosage: UNK, WEEKLY
     Route: 065
  4. DEXAMETHASONE [Suspect]
     Active Substance: DEXAMETHASONE
     Dosage: 40 MILLIGRAM, DAILY
     Route: 065
  5. DEXAMETHASONE [Suspect]
     Active Substance: DEXAMETHASONE
     Dosage: UNK, HIGH-DOSE
     Route: 065
  6. DARATUMUMAB [Suspect]
     Active Substance: DARATUMUMAB
     Indication: Hyperammonaemic encephalopathy
     Dosage: UNK, WEEKLY
     Route: 065

REACTIONS (4)
  - Herpes zoster disseminated [Unknown]
  - Bacterial parotitis [Unknown]
  - Liver injury [Unknown]
  - Disease recurrence [Unknown]
